FAERS Safety Report 25319457 (Version 1)
Quarter: 2025Q2

REPORT INFORMATION
  Report Type: Report from Study
  Country: US (occurrence: US)
  Receive Date: 20250515
  Receipt Date: 20250515
  Transmission Date: 20250716
  Serious: Yes (Other)
  Sender: AGIOS PHARMACEUTICALS
  Company Number: US-AGIOS-2504US04236

PATIENT
  Sex: Female

DRUGS (1)
  1. MITAPIVAT [Suspect]
     Active Substance: MITAPIVAT
     Indication: Sickle cell disease
     Route: 065
     Dates: start: 20250319

REACTIONS (12)
  - Interstitial lung disease [Unknown]
  - Cardiac aneurysm [Unknown]
  - Diarrhoea [Unknown]
  - Product dose omission issue [Unknown]
  - Myalgia [Unknown]
  - Dry mouth [Unknown]
  - Haemoglobin decreased [Unknown]
  - Dyspnoea [Unknown]
  - Wheezing [Unknown]
  - Off label use [Unknown]
  - Muscle tightness [Unknown]
  - Respiratory gas exchange disorder [Unknown]
